FAERS Safety Report 10312009 (Version 1)
Quarter: 2014Q3

REPORT INFORMATION
  Report Type: Report from Study
  Country: GR (occurrence: GR)
  Receive Date: 20140717
  Receipt Date: 20140717
  Transmission Date: 20150326
  Serious: Yes (Hospitalization)
  Sender: FDA-Public Use
  Company Number: GR-US-EMD SERONO, INC.-7306860

PATIENT
  Age: 41 Year
  Sex: Female
  Weight: 66 kg

DRUGS (3)
  1. REBIF [Suspect]
     Active Substance: INTERFERON BETA-1A
     Indication: MULTIPLE SCLEROSIS
     Route: 058
     Dates: start: 200807, end: 20140523
  2. REBIF [Suspect]
     Active Substance: INTERFERON BETA-1A
     Route: 058
     Dates: start: 20140619
  3. PRAZEPAM [Concomitant]
     Active Substance: PRAZEPAM
     Indication: DEPRESSED MOOD
     Route: 048
     Dates: start: 200806

REACTIONS (5)
  - Fallopian tube cyst [Recovering/Resolving]
  - Pyrexia [Recovering/Resolving]
  - Abdominal pain [Recovering/Resolving]
  - Localised oedema [Unknown]
  - Salpingitis [Recovering/Resolving]

NARRATIVE: CASE EVENT DATE: 20140523
